FAERS Safety Report 10750218 (Version 1)
Quarter: 2015Q1

REPORT INFORMATION
  Report Type: Spontaneous
  Country: CN (occurrence: CN)
  Receive Date: 20150129
  Receipt Date: 20150129
  Transmission Date: 20150721
  Serious: Yes (Hospitalization)
  Sender: FDA-Public Use
  Company Number: CN-SYMPLMED PHARMACEUTICALS-2015SYM00021

PATIENT
  Age: 56 Year
  Sex: Female
  Weight: 68 kg

DRUGS (2)
  1. ACEON [Suspect]
     Active Substance: PERINDOPRIL ERBUMINE
     Indication: HYPERTENSION
     Dosage: 8 MG, QD
     Route: 048
     Dates: start: 20140228, end: 20140306
  2. ACEON [Suspect]
     Active Substance: PERINDOPRIL ERBUMINE
     Dosage: 8 MG, QD
     Route: 048
     Dates: start: 20140520, end: 20140607

REACTIONS (3)
  - Lower respiratory tract inflammation [Unknown]
  - Cough [Recovered/Resolved]
  - Nasopharyngitis [Recovered/Resolved]

NARRATIVE: CASE EVENT DATE: 20140306
